FAERS Safety Report 6675108-0 (Version None)
Quarter: 2010Q2

REPORT INFORMATION
  Report Type: 
  Country: None (occurrence: None)
  Receive Date: 20100409
  Receipt Date: 20100405
  Transmission Date: 20101027
  Serious: Yes (Hospitalization)
  Sender: FDA-Public Use
  Company Number: TR-ELI_LILLY_AND_COMPANY-TR201004001410

PATIENT
  Age: 52 Year
  Sex: Female

DRUGS (4)
  1. HUMALOG MIX 50/50 [Suspect]
     Indication: DIABETES MELLITUS
     Dosage: 30 IU, EACH MORNING
     Route: 058
     Dates: start: 20100201
  2. HUMALOG MIX 50/50 [Suspect]
     Dosage: 30 IU, OTHER
     Route: 058
     Dates: start: 20100201
  3. HUMALOG MIX 50/50 [Suspect]
     Dosage: 30 IU, EACH EVENING
     Route: 058
     Dates: start: 20100201
  4. METFORMIN (GLUCOPHAGE) [Concomitant]
     Dosage: UNK, DAILY (1/D)

REACTIONS (1)
  - BLOOD GLUCOSE INCREASED [None]
